FAERS Safety Report 8512095-4 (Version None)
Quarter: 2012Q3

REPORT INFORMATION
  Report Type: 
  Country: None (occurrence: None)
  Receive Date: 20120716
  Receipt Date: 20120709
  Transmission Date: 20120928
  Serious: Yes (Hospitalization, Other)
  Sender: FDA-Public Use
  Company Number: US-ASTRAZENECA-2012SE46678

PATIENT
  Age: 76 Year
  Sex: Male
  Weight: 61.2 kg

DRUGS (5)
  1. NAMENDA [Concomitant]
     Indication: DEMENTIA ALZHEIMER'S TYPE
  2. FLECAINIDE ACETATE [Concomitant]
     Indication: HEART RATE IRREGULAR
  3. ZOLOFT [Concomitant]
     Indication: DEPRESSION
  4. NEXIUM [Suspect]
     Indication: GASTROOESOPHAGEAL REFLUX DISEASE
     Route: 048
     Dates: start: 20080101
  5. ATENOLOL [Concomitant]
     Indication: HEART RATE IRREGULAR

REACTIONS (3)
  - FALL [None]
  - HIP FRACTURE [None]
  - RIB FRACTURE [None]
